FAERS Safety Report 10004091 (Version 1)
Quarter: 2014Q1

REPORT INFORMATION
  Report Type: Spontaneous
  Country: MX (occurrence: MX)
  Receive Date: 20140312
  Receipt Date: 20140312
  Transmission Date: 20141002
  Serious: Yes (Hospitalization)
  Sender: FDA-Public Use
  Company Number: PHHY2014MX026400

PATIENT
  Age: 22 Year
  Sex: Male
  Weight: 69 kg

DRUGS (13)
  1. CLINDAMYCIN [Suspect]
     Indication: TONSILLITIS
     Dosage: 1800 MG, PER DAY
  2. PARACETAMOL [Suspect]
     Indication: TONSILLITIS
     Dosage: 500 MG, UNK
  3. AMOXICILLIN [Suspect]
     Indication: TONSILLITIS
     Dosage: 500 MG, UNK
  4. METRONIDAZOLE [Concomitant]
     Dosage: 500 MG, Q8H
     Route: 042
  5. MEROPENEM [Concomitant]
     Dosage: 1 G, Q8H
  6. AMIKACIN [Concomitant]
     Dosage: 500 MG, Q12H
  7. FLUCONAZOLE [Concomitant]
     Indication: PROPHYLAXIS
     Dosage: 100 MG, Q12H
  8. NYSTATIN [Concomitant]
     Indication: PROPHYLAXIS
     Route: 048
  9. KETOPROFEN [Concomitant]
     Indication: ANALGESIC THERAPY
  10. BENZONATATE [Concomitant]
     Indication: COUGH
  11. IPRATROPIUM [Concomitant]
     Indication: COUGH
  12. BUDESONIDE [Concomitant]
     Indication: COUGH
  13. OMEPRAZOLE [Concomitant]
     Indication: PROPHYLAXIS

REACTIONS (14)
  - Bone marrow failure [Recovering/Resolving]
  - Pyrexia [Recovered/Resolved]
  - Neutropenia [Recovered/Resolved]
  - Leukopenia [Recovered/Resolved]
  - Thrombocytopenia [Recovered/Resolved]
  - Pancytopenia [Recovered/Resolved]
  - Tonsillitis [Recovering/Resolving]
  - Cough [Recovering/Resolving]
  - Tonsillar hypertrophy [Recovering/Resolving]
  - Purulent discharge [Recovering/Resolving]
  - Pharyngeal erythema [Recovering/Resolving]
  - Odynophagia [Recovering/Resolving]
  - Lymphadenopathy [Recovered/Resolved]
  - Productive cough [Recovering/Resolving]
